FAERS Safety Report 12184311 (Version 1)
Quarter: 2016Q1

REPORT INFORMATION
  Report Type: Spontaneous
  Country: DK (occurrence: DK)
  Receive Date: 20160316
  Receipt Date: 20160316
  Transmission Date: 20160526
  Serious: Yes (Hospitalization)
  Sender: FDA-Public Use
  Company Number: DK-PFIZER INC-2016150045

PATIENT
  Sex: Male

DRUGS (14)
  1. IBUMETIN [Concomitant]
     Active Substance: IBUPROFEN
     Dosage: UNK
  2. SINEMET [Concomitant]
     Active Substance: CARBIDOPA\LEVODOPA
     Dosage: UNK
  3. BRICANYL [Concomitant]
     Active Substance: TERBUTALINE SULFATE
     Dosage: UNK
  4. OPRYMEA [Concomitant]
     Active Substance: PRAMIPEXOLE DIHYDROCHLORIDE
     Dosage: UNK
  5. CHAMPIX [Suspect]
     Active Substance: VARENICLINE TARTRATE
     Dosage: UNK
  6. CENTYL MED KALIUMKLORID [Concomitant]
     Active Substance: BENDROFLUMETHIAZIDE\POTASSIUM CHLORIDE
     Dosage: UNK
  7. COMTESS [Concomitant]
     Active Substance: ENTACAPONE
     Dosage: 200 MG, UNK
  8. MADOPARK QUICK [Concomitant]
     Active Substance: BENSERAZIDE HYDROCHLORIDE\LEVODOPA
     Dosage: UNK
  9. CAVERJECTDUAL [Concomitant]
     Dosage: UNK
  10. SELOZOK [Concomitant]
     Active Substance: METOPROLOL SUCCINATE
     Dosage: 50 MG SEVERAL TIMES DAILY
  11. PULMICORT TURBUHALER [Concomitant]
     Active Substance: BUDESONIDE
     Dosage: UNK
  12. PINEX [Concomitant]
     Active Substance: ACETAMINOPHEN
     Dosage: UNK
  13. LAXOBERAL [Concomitant]
     Active Substance: SODIUM PICOSULFATE
     Dosage: UNK
  14. DETRUSITOL [Concomitant]
     Active Substance: TOLTERODINE TARTRATE
     Dosage: UNK

REACTIONS (7)
  - Drug interaction [Unknown]
  - Poisoning [Unknown]
  - Blood pressure decreased [Unknown]
  - Dyspnoea [Unknown]
  - Muscle spasms [Unknown]
  - Dizziness [Unknown]
  - Malaise [Unknown]
